FAERS Safety Report 6294266-3 (Version None)
Quarter: 2009Q3

REPORT INFORMATION
  Report Type: 
  Country: None (occurrence: None)
  Receive Date: 20090803
  Receipt Date: 20090421
  Transmission Date: 20100115
  Serious: No
  Sender: FDA-Public Use
  Company Number: A0779891A

PATIENT
  Age: 36 Year
  Sex: Male

DRUGS (1)
  1. NICORETTE [Suspect]
     Dates: end: 20090408

REACTIONS (6)
  - AGITATION [None]
  - ANGER [None]
  - EXPIRED DRUG ADMINISTERED [None]
  - INTENTIONAL DRUG MISUSE [None]
  - NICOTINE DEPENDENCE [None]
  - PAIN IN JAW [None]
